FAERS Safety Report 5154033-0 (Version None)
Quarter: 2006Q4

REPORT INFORMATION
  Report Type: 
  Country: None (occurrence: None)
  Receive Date: 20061120
  Receipt Date: 20061108
  Transmission Date: 20070319
  Serious: Yes (Hospitalization)
  Sender: FDA-Public Use
  Company Number: ES-ROCHE-470316

PATIENT
  Age: 66 Year
  Sex: Male
  Weight: 60 kg

DRUGS (4)
  1. DACLIZUMAB [Suspect]
     Route: 042
     Dates: start: 20060902
  2. MYCOPHENOLATE MOFETIL [Suspect]
     Route: 048
     Dates: start: 20060819
  3. TACROLIMUS [Suspect]
     Route: 048
     Dates: start: 20060825
  4. TACROLIMUS [Suspect]
     Route: 048
     Dates: start: 20060912

REACTIONS (2)
  - ACINETOBACTER INFECTION [None]
  - URINARY TRACT INFECTION [None]
